FAERS Safety Report 14277893 (Version 1)
Quarter: 2017Q4

REPORT INFORMATION
  Report Type: Spontaneous
  Country: US (occurrence: US)
  Receive Date: 20171212
  Receipt Date: 20171212
  Transmission Date: 20180321
  Serious: No
  Sender: FDA-Public Use
  Company Number: US-PFIZER INC-2017524406

PATIENT
  Age: 58 Year
  Sex: Female

DRUGS (1)
  1. DILANTIN [Suspect]
     Active Substance: PHENYTOIN
     Dosage: 100 MG, 3X/DAY

REACTIONS (5)
  - Poor quality drug administered [Unknown]
  - Lethargy [Unknown]
  - Burning sensation [Unknown]
  - Product odour abnormal [Unknown]
  - Dry eye [Unknown]
